FAERS Safety Report 21045831 (Version 1)
Quarter: 2022Q3

REPORT INFORMATION
  Report Type: Other
  Country: None (occurrence: ES)
  Receive Date: 20220706
  Receipt Date: 20220706
  Transmission Date: 20221027
  Serious: Yes (Other)
  Sender: FDA-Public Use
  Company Number: ES-VGYAAN Pharmaceuticals LLC-2130574

PATIENT
  Age: 42 Year
  Sex: Female

DRUGS (2)
  1. CARBAMAZEPINE [Suspect]
     Active Substance: CARBAMAZEPINE
     Indication: Trigeminal neuralgia
     Route: 048
  2. LACOSAMIDE [Suspect]
     Active Substance: LACOSAMIDE
     Route: 042

REACTIONS (3)
  - Respiratory failure [Recovering/Resolving]
  - Erythema multiforme [Recovering/Resolving]
  - Drug ineffective [Unknown]
